FAERS Safety Report 6115353-6 (Version None)
Quarter: 2009Q1

REPORT INFORMATION
  Report Type: 
  Country: None (occurrence: None)
  Receive Date: 20090313
  Receipt Date: 20081029
  Transmission Date: 20090719
  Serious: Yes (Other)
  Sender: FDA-Public Use
  Company Number: US-JNJFOC-20090302855

PATIENT
  Age: 23 Year
  Sex: Female

DRUGS (1)
  1. RISPERIDONE [Suspect]
     Indication: SCHIZOPHRENIA
     Route: 065

REACTIONS (2)
  - BLOOD PROLACTIN INCREASED [None]
  - PITUITARY TUMOUR BENIGN [None]
